FAERS Safety Report 9311340 (Version 2)
Quarter: 2013Q4

REPORT INFORMATION
  Report Type: Spontaneous
  Country: IT (occurrence: IT)
  Receive Date: 20130528
  Receipt Date: 20131104
  Transmission Date: 20140711
  Serious: Yes (Death, Hospitalization)
  Sender: FDA-Public Use
  Company Number: IT-BRISTOL-MYERS SQUIBB COMPANY-18925297

PATIENT
  Age: 61 Year
  Sex: Female

DRUGS (2)
  1. METFORMIN HCL [Suspect]
     Indication: DIABETES MELLITUS
     Route: 048
     Dates: start: 20050101, end: 20130202
  2. DICLOFENAC SODIUM [Suspect]
     Indication: BACK PAIN
     Dosage: 1DF: 2 POSOLOGY UNIT
     Route: 030
     Dates: start: 20130129, end: 20130131

REACTIONS (1)
  - Metabolic acidosis [Fatal]
